FAERS Safety Report 7417562-2 (Version None)
Quarter: 2011Q2

REPORT INFORMATION
  Report Type: 
  Country: None (occurrence: None)
  Receive Date: 20110415
  Receipt Date: 20110401
  Transmission Date: 20111010
  Serious: No
  Sender: FDA-Public Use
  Company Number: US-B.I. PHARMACEUTICALS,INC./RIDGEFIELD-2011-BP-03233BP

PATIENT
  Sex: Male

DRUGS (11)
  1. LISINOPRIL [Concomitant]
     Indication: HYPERTENSION
  2. AVODART [Concomitant]
  3. PRADAXA [Suspect]
     Indication: ATRIAL FIBRILLATION
     Dosage: 300 MG
     Route: 048
     Dates: start: 20110113
  4. SIMVASTATIN [Concomitant]
     Indication: BLOOD CHOLESTEROL INCREASED
  5. PRADAXA [Suspect]
     Indication: CEREBROVASCULAR ACCIDENT PROPHYLAXIS
  6. ALLOPURINOL [Concomitant]
     Indication: GOUT
  7. BETAPACE [Concomitant]
     Indication: HYPERTENSION
  8. K+ CITRATE [Concomitant]
  9. SOTALOL HCL [Concomitant]
  10. BETAPACE [Concomitant]
     Indication: ATRIAL FIBRILLATION
  11. ACTOPLUS MET [Concomitant]
     Indication: DIABETES MELLITUS

REACTIONS (3)
  - HAEMORRHAGE [None]
  - COUGH [None]
  - THROAT IRRITATION [None]
